FAERS Safety Report 6283454-8 (Version None)
Quarter: 2009Q3

REPORT INFORMATION
  Report Type: 
  Country: None (occurrence: None)
  Receive Date: 20090724
  Receipt Date: 20090402
  Transmission Date: 20100115
  Serious: No
  Sender: FDA-Public Use
  Company Number: US-ALEXION-A200900278

PATIENT
  Sex: Female
  Weight: 74.376 kg

DRUGS (8)
  1. SOLIRIS [Suspect]
     Indication: PAROXYSMAL NOCTURNAL HAEMOGLOBINURIA
     Dosage: 600 MG, UNK
     Route: 042
     Dates: start: 20070618
  2. SOLIRIS [Suspect]
     Dosage: 900 MG, Q2W
     Route: 042
     Dates: start: 20070731
  3. BONIVA [Concomitant]
     Dosage: 75 MG, QMONTH
     Dates: start: 20080101
  4. BONIVA [Concomitant]
     Dosage: 150 MG, QMONTH
  5. DAPSONE [Concomitant]
     Dosage: 100 MG, QD
     Route: 048
  6. AMLODIPINE BESYLATE [Concomitant]
     Dosage: 5 MG, QD
     Route: 048
  7. FOLIC ACID [Concomitant]
     Dosage: 1 MG, QD
     Route: 048
  8. LISINOPRIL [Concomitant]
     Dosage: 20 MG, QD
     Route: 048

REACTIONS (9)
  - BLOOD PARATHYROID HORMONE INCREASED [None]
  - BONE PAIN [None]
  - DIZZINESS [None]
  - FLATULENCE [None]
  - HEADACHE [None]
  - HYPERCALCAEMIA [None]
  - MYALGIA [None]
  - NAUSEA [None]
  - VITAMIN D DEFICIENCY [None]
